FAERS Safety Report 9891703 (Version 1)
Quarter: 2014Q1

REPORT INFORMATION
  Report Type: Spontaneous
  Country: US (occurrence: US)
  Receive Date: 20140212
  Receipt Date: 20140212
  Transmission Date: 20141002
  Serious: Yes (Other)
  Sender: FDA-Public Use
  Company Number: US-PFIZER INC-2014037212

PATIENT
  Sex: Male

DRUGS (1)
  1. LIPITOR [Suspect]
     Dosage: UNK
     Dates: start: 1994

REACTIONS (5)
  - Neoplasm malignant [Unknown]
  - Liver function test abnormal [Unknown]
  - Vomiting [Unknown]
  - Hyperhidrosis [Unknown]
  - Chills [Unknown]
